FAERS Safety Report 23047411 (Version 1)
Quarter: 2023Q4

REPORT INFORMATION
  Report Type: Report from Study
  Country: US (occurrence: US)
  Receive Date: 20231010
  Receipt Date: 20231010
  Transmission Date: 20240110
  Serious: Yes (Other)
  Sender: FDA-Public Use
  Company Number: US-ABBVIE-5434045

PATIENT
  Sex: Female

DRUGS (2)
  1. SKYRIZI [Suspect]
     Active Substance: RISANKIZUMAB-RZAA
     Indication: Psoriasis
     Route: 058
     Dates: start: 20230314
  2. INSULIN NOS [Concomitant]
     Active Substance: INSULIN NOS
     Indication: Diabetes mellitus

REACTIONS (12)
  - Hypoacusis [Unknown]
  - Oesophageal disorder [Unknown]
  - Cardiac disorder [Unknown]
  - Migraine [Unknown]
  - Nerve injury [Unknown]
  - Diabetes mellitus [Unknown]
  - Carpal tunnel syndrome [Unknown]
  - Blood pressure abnormal [Unknown]
  - Sleep apnoea syndrome [Unknown]
  - Eye haemorrhage [Unknown]
  - Hypoaesthesia [Unknown]
  - Hysterectomy [Unknown]

NARRATIVE: CASE EVENT DATE: 20230101
